FAERS Safety Report 5051329-8 (Version None)
Quarter: 2006Q3

REPORT INFORMATION
  Report Type: 
  Country: None (occurrence: None)
  Receive Date: 20060714
  Receipt Date: 20060713
  Transmission Date: 20061208
  Serious: Yes (Disabling)
  Sender: FDA-Public Use
  Company Number: PR-BRISTOL-MYERS SQUIBB COMPANY-13441415

PATIENT
  Age: 56 Year
  Sex: Female

DRUGS (3)
  1. KENALOG-40 [Suspect]
     Route: 031
  2. INSULIN [Concomitant]
     Indication: DIABETES MELLITUS
     Route: 058
  3. ZYMAR [Concomitant]
     Route: 047

REACTIONS (4)
  - ENDOPHTHALMITIS [None]
  - HYPOPYON [None]
  - VISUAL ACUITY REDUCED [None]
  - VITRITIS [None]
